FAERS Safety Report 6402469-X (Version None)
Quarter: 2009Q4

REPORT INFORMATION
  Report Type: 
  Country: None (occurrence: None)
  Receive Date: 20091015
  Receipt Date: 20091007
  Transmission Date: 20100525
  Serious: Yes (Hospitalization)
  Sender: FDA-Public Use
  Company Number: GR-ABBOTT-09P-066-0595712-00

PATIENT
  Age: 51 Year
  Sex: Male
  Weight: 94 kg

DRUGS (12)
  1. ZEMPLAR [Suspect]
     Indication: HYPERPARATHYROIDISM SECONDARY
     Route: 042
     Dates: start: 20080611
  2. EPREX [Concomitant]
     Indication: DRUG USE FOR UNKNOWN INDICATION
  3. FERROVIN [Concomitant]
     Indication: DRUG USE FOR UNKNOWN INDICATION
  4. SUPERAMIN [Concomitant]
     Indication: DRUG USE FOR UNKNOWN INDICATION
  5. NEUROBION [Concomitant]
     Indication: DRUG USE FOR UNKNOWN INDICATION
  6. RENAGEL [Concomitant]
     Indication: DRUG USE FOR UNKNOWN INDICATION
  7. CALCIORAL [Concomitant]
     Indication: DRUG USE FOR UNKNOWN INDICATION
  8. PLAVIX [Concomitant]
     Indication: DRUG USE FOR UNKNOWN INDICATION
  9. LOBIVON [Concomitant]
     Indication: DRUG USE FOR UNKNOWN INDICATION
  10. TRIATEC [Concomitant]
     Indication: DRUG USE FOR UNKNOWN INDICATION
  11. INEGY [Concomitant]
     Indication: DRUG USE FOR UNKNOWN INDICATION
  12. OMACOR [Concomitant]
     Indication: DRUG USE FOR UNKNOWN INDICATION

REACTIONS (2)
  - ANKLE FRACTURE [None]
  - DIABETIC FOOT [None]
